FAERS Safety Report 21416680 (Version 1)
Quarter: 2022Q4

REPORT INFORMATION
  Report Type: Spontaneous
  Country: US (occurrence: US)
  Receive Date: 20221006
  Receipt Date: 20221006
  Transmission Date: 20230113
  Serious: No
  Sender: FDA-Public Use
  Company Number: US-PERRIGO-22US009225

PATIENT
  Sex: Male

DRUGS (1)
  1. DIMETHICONE\LOPERAMIDE HYDROCHLORIDE [Suspect]
     Active Substance: DIMETHICONE\LOPERAMIDE HYDROCHLORIDE
     Indication: Product used for unknown indication
     Dosage: 1/2 TABLET, UNK
     Route: 048
     Dates: start: 202206

REACTIONS (1)
  - Intentional underdose [Unknown]

NARRATIVE: CASE EVENT DATE: 20220601
